FAERS Safety Report 17450452 (Version 2)
Quarter: 2020Q1

REPORT INFORMATION
  Report Type: Spontaneous
  Country: KR (occurrence: KR)
  Receive Date: 20200224
  Receipt Date: 20200228
  Transmission Date: 20200409
  Serious: Yes (Hospitalization, Other)
  Sender: FDA-Public Use
  Company Number: NVSC2020KR040947

PATIENT
  Age: 17 Day

DRUGS (3)
  1. OCTREOTIDE. [Suspect]
     Active Substance: OCTREOTIDE
     Dosage: 10 UG/HR PER KG 9FROM DAY 13 UNTIL TRANSFER TO OTHER HOSPITAL)
     Route: 042
  2. OCTREOTIDE. [Suspect]
     Active Substance: OCTREOTIDE
     Indication: CONGENITAL CHYLOTHORAX
     Dosage: 0.5 UG/HR PER HOUR FROM DAY 4
     Route: 042
  3. OCTREOTIDE. [Suspect]
     Active Substance: OCTREOTIDE
     Dosage: 1 UG/HR, QD, PER KG
     Route: 042

REACTIONS (10)
  - Pneumatosis intestinalis [Unknown]
  - Urine output decreased [Unknown]
  - Metabolic acidosis [Unknown]
  - Abdominal distension [Unknown]
  - Stenosis [Unknown]
  - Necrotising colitis [Recovered/Resolved]
  - Product use in unapproved indication [Unknown]
  - Perforation [Unknown]
  - Gastrointestinal haemorrhage [Unknown]
  - Portal venous gas [Unknown]
